FAERS Safety Report 6081752-4 (Version None)
Quarter: 2009Q1

REPORT INFORMATION
  Report Type: 
  Country: None (occurrence: None)
  Receive Date: 20090218
  Receipt Date: 20090210
  Transmission Date: 20090719
  Serious: Yes (Other)
  Sender: FDA-Public Use
  Company Number: PL-PFIZER INC-2009169189

PATIENT

DRUGS (3)
  1. SORTIS [Suspect]
     Dosage: 40 MG, 1X/DAY
  2. PENTOHEXAL [Concomitant]
  3. ALL OTHER THERAPEUTIC PRODUCTS [Concomitant]

REACTIONS (2)
  - ARTERIOSCLEROSIS OBLITERANS [None]
  - LEUKOCYTOSIS [None]
